FAERS Safety Report 19748743 (Version 1)
Quarter: 2021Q3

REPORT INFORMATION
  Report Type: Spontaneous
  Country: US (occurrence: US)
  Receive Date: 20210826
  Receipt Date: 20210826
  Transmission Date: 20211014
  Serious: Yes (Other)
  Sender: FDA-Public Use
  Company Number: US-CADILA HEALTHCARE LIMITED-US-ZYDUS-069173

PATIENT

DRUGS (2)
  1. AMITRIPTYLINE 10 MG TABLET [Suspect]
     Active Substance: AMITRIPTYLINE HYDROCHLORIDE
     Indication: OFF LABEL USE
     Dosage: 40 MILLIGRAM, QD
     Route: 048
     Dates: start: 2021, end: 20210731
  2. AMITRIPTYLINE 10 MG TABLET [Suspect]
     Active Substance: AMITRIPTYLINE HYDROCHLORIDE
     Indication: SLEEP DISORDER
     Dosage: 10 MILLIGRAM, QD(ONE MONTH)
     Route: 048
     Dates: start: 2021

REACTIONS (2)
  - Tardive dyskinesia [Not Recovered/Not Resolved]
  - Product use in unapproved indication [Recovered/Resolved]

NARRATIVE: CASE EVENT DATE: 2021
